FAERS Safety Report 9553819 (Version 2)
Quarter: 2013Q4

REPORT INFORMATION
  Report Type: Spontaneous
  Country: DE (occurrence: None)
  Receive Date: 20130923
  Receipt Date: 20131002
  Transmission Date: 20140711
  Serious: Yes (Hospitalization)
  Sender: FDA-Public Use
  Company Number: HRA-CDB20130184

PATIENT
  Age: 43 Year
  Sex: Female

DRUGS (2)
  1. ELLAONE [Suspect]
     Indication: POST COITAL CONTRACEPTION
     Dates: end: 2013
  2. LEVOTHYROXINE SODIUM [Concomitant]

REACTIONS (9)
  - Dry eye [None]
  - Barrett^s oesophagus [None]
  - Hypothyroidism [None]
  - Abdominal discomfort [None]
  - Pain in extremity [None]
  - Myalgia [None]
  - Tremor [None]
  - Dry mouth [None]
  - Dry throat [None]
